FAERS Safety Report 5146464-X (Version None)
Quarter: 2006Q4

REPORT INFORMATION
  Report Type: 
  Country: None (occurrence: None)
  Receive Date: 20061102
  Receipt Date: 20061030
  Transmission Date: 20070319
  Serious: Yes (Other)
  Sender: FDA-Public Use
  Company Number: 009000

PATIENT
  Sex: Female

DRUGS (4)
  1. MEDROXYPROGESTERONE [Suspect]
     Dosage: ORAL
     Route: 048
     Dates: start: 19890101, end: 20021101
  2. ESTRADIOL [Suspect]
     Dosage: ORAL
     Route: 048
     Dates: start: 19890101, end: 20021101
  3. PREMARIN [Suspect]
     Dosage: ORAL
     Route: 048
     Dates: start: 19890101, end: 20021101
  4. PROVERA [Suspect]
     Dosage: ORAL
     Route: 048
     Dates: start: 19890101, end: 20021101

REACTIONS (1)
  - BREAST CANCER FEMALE [None]
